FAERS Safety Report 4714176-X (Version None)
Quarter: 2005Q3

REPORT INFORMATION
  Report Type: 
  Country: None (occurrence: None)
  Receive Date: 20050701
  Receipt Date: 20040916
  Transmission Date: 20060218
  Serious: Yes (Disabling)
  Sender: FDA-Public Use
  Company Number: 2004057446

PATIENT
  Age: 24 Year
  Sex: Female

DRUGS (3)
  1. ZOLOFT [Suspect]
     Indication: MAJOR DEPRESSION
     Dosage: 50 MG (50 MG, 1 IN 1 D), ORAL
     Route: 048
     Dates: start: 20040706, end: 20040820
  2. OBETROL [Concomitant]
  3. BUPROPION HYDROCHLORIDE [Concomitant]

REACTIONS (2)
  - AMNESIA [None]
  - MENTAL DISORDER [None]
